FAERS Safety Report 7727529-2 (Version None)
Quarter: 2011Q3

REPORT INFORMATION
  Report Type: 
  Country: None (occurrence: None)
  Receive Date: 20110902
  Receipt Date: 20110830
  Transmission Date: 20111222
  Serious: Yes (Other)
  Sender: FDA-Public Use
  Company Number: US-PFIZER INC-2011203132

PATIENT
  Sex: Male

DRUGS (1)
  1. CHANTIX [Suspect]
     Dosage: UNK
     Dates: start: 20090501

REACTIONS (11)
  - PARANOIA [None]
  - ANXIETY [None]
  - IRRITABILITY [None]
  - AGGRESSION [None]
  - MOOD SWINGS [None]
  - MENTAL DISORDER [None]
  - SUICIDAL IDEATION [None]
  - DEPRESSION [None]
  - MARITAL PROBLEM [None]
  - AMNESIA [None]
  - FATIGUE [None]
